FAERS Safety Report 8021165-9 (Version None)
Quarter: 2011Q4

REPORT INFORMATION
  Report Type: 
  Country: None (occurrence: None)
  Receive Date: 20111222
  Receipt Date: 20110312
  Transmission Date: 20120403
  Serious: Yes (Death)
  Sender: FDA-Public Use
  Company Number: ALB-006-11-CN

PATIENT
  Age: 51 Year
  Sex: Male

DRUGS (2)
  1. ALBUNORM (HUMAN ALBUMIN) [Suspect]
     Indication: HYPOALBUMINAEMIA
     Dosage: 10 G - 1X 1 / AS NECESSARY; INTRAVENOUS (NOT OTHERWISE SPECIFIED)
     Route: 042
     Dates: start: 20110112, end: 20110112
  2. CEFTAZIDIME [Concomitant]

REACTIONS (2)
  - COMA [None]
  - ANAPHYLACTIC SHOCK [None]
